FAERS Safety Report 22376626 (Version 2)
Quarter: 2023Q2

REPORT INFORMATION
  Report Type: Spontaneous
  Country: US (occurrence: US)
  Receive Date: 20230528
  Receipt Date: 20230528
  Transmission Date: 20230721
  Serious: No
  Sender: FDA-Public Use
  Company Number: US-Dermavant-000585

PATIENT

DRUGS (2)
  1. TAPINAROF [Suspect]
     Active Substance: TAPINAROF
  2. SKYRIZI [Concomitant]
     Active Substance: RISANKIZUMAB-RZAA

REACTIONS (2)
  - Erythema [Unknown]
  - Skin exfoliation [Unknown]
